FAERS Safety Report 7750909-6 (Version None)
Quarter: 2011Q3

REPORT INFORMATION
  Report Type: 
  Country: None (occurrence: None)
  Receive Date: 20110914
  Receipt Date: 20110906
  Transmission Date: 20111222
  Serious: Yes (Other)
  Sender: FDA-Public Use
  Company Number: US-ASTRAZENECA-2011SE22841

PATIENT
  Age: 74 Year
  Sex: Female

DRUGS (2)
  1. FENOFIBRATE [Concomitant]
     Route: 065
     Dates: start: 20100501
  2. NEXIUM [Suspect]
     Indication: GASTROOESOPHAGEAL REFLUX DISEASE
     Route: 048
     Dates: start: 20030101, end: 20110101

REACTIONS (1)
  - CATARACT [None]
